FAERS Safety Report 7690500-3 (Version None)
Quarter: 2011Q3

REPORT INFORMATION
  Report Type: 
  Country: None (occurrence: None)
  Receive Date: 20110818
  Receipt Date: 20110812
  Transmission Date: 20111222
  Serious: Yes (Other)
  Sender: FDA-Public Use
  Company Number: US-PFIZER INC-2011159903

PATIENT
  Age: 28 Year
  Sex: Female
  Weight: 90.7 kg

DRUGS (2)
  1. HYDROXYZINE HYDROCHLORIDE [Suspect]
     Indication: DEPRESSION
     Dosage: 50 MG, 1X/DAY
     Dates: start: 20100917
  2. PRISTIQ [Suspect]
     Indication: ANXIETY
     Dosage: 50 MG, 1X/DAY (TAKE 1/2 TO 1 TAB EVERYDAY)
     Dates: start: 20101104

REACTIONS (10)
  - HALLUCINATION, VISUAL [None]
  - HALLUCINATION, TACTILE [None]
  - FEELING ABNORMAL [None]
  - ANGER [None]
  - LAZINESS [None]
  - FATIGUE [None]
  - MALAISE [None]
  - HALLUCINATION, AUDITORY [None]
  - HEADACHE [None]
  - DEPRESSION [None]
